FAERS Safety Report 5041570-2 (Version None)
Quarter: 2006Q2

REPORT INFORMATION
  Report Type: 
  Country: None (occurrence: None)
  Receive Date: 20060601
  Receipt Date: 20060327
  Transmission Date: 20061013
  Serious: No
  Sender: FDA-Public Use
  Company Number: 2006PV011103

PATIENT
  Age: 57 Year
  Sex: Female
  Weight: 96.1626 kg

DRUGS (6)
  1. BYETTA [Suspect]
     Indication: DIABETES MELLITUS NON-INSULIN-DEPENDENT
     Dosage: 5 MCG; BID; SC
     Route: 058
     Dates: start: 20060327
  2. NIACIN [Suspect]
     Indication: BLOOD CHOLESTEROL
     Dosage: 500 MG; QD
     Dates: start: 20060327
  3. METFORMIN [Concomitant]
  4. ACTOS [Concomitant]
  5. METAGLIP [Concomitant]
  6. LANTUS [Concomitant]

REACTIONS (2)
  - BLOOD GLUCOSE INCREASED [None]
  - FLUSHING [None]
